FAERS Safety Report 24110650 (Version 2)
Quarter: 2024Q3

REPORT INFORMATION
  Report Type: Spontaneous
  Country: US (occurrence: US)
  Receive Date: 20240718
  Receipt Date: 20240822
  Transmission Date: 20241016
  Serious: No
  Sender: JOHNSON AND JOHNSON
  Company Number: US-JNJFOC-20240738363

PATIENT
  Age: 34 Year
  Sex: Female

DRUGS (4)
  1. SPRAVATO [Suspect]
     Active Substance: ESKETAMINE
     Indication: Major depression
     Dosage: RECEIVED 3 SPRAVATO TREATMENTS
     Dates: start: 20240624, end: 20240701
  2. PRISTIQ EXTENDED-RELEASE [Concomitant]
     Active Substance: DESVENLAFAXINE SUCCINATE
     Indication: Major depression
     Route: 048
  3. TRILEPTAL [Concomitant]
     Active Substance: OXCARBAZEPINE
     Indication: Major depression
     Route: 048
  4. AZSTARYS [Concomitant]
     Active Substance: DEXMETHYLPHENIDATE HYDROCHLORIDE\SERDEXMETHYLPHENIDATE CHLORIDE
     Indication: Attention deficit hyperactivity disorder
     Dosage: 52.3//10.4 MG DAILY
     Route: 048

REACTIONS (1)
  - Irritability [Unknown]

NARRATIVE: CASE EVENT DATE: 20240628
